FAERS Safety Report 9637490 (Version 3)
Quarter: 2013Q4

REPORT INFORMATION
  Report Type: Spontaneous
  Country: AT (occurrence: AT)
  Receive Date: 20131022
  Receipt Date: 20131220
  Transmission Date: 20140711
  Serious: Yes (Death, Hospitalization, Other)
  Sender: FDA-Public Use
  Company Number: AT-JNJFOC-20131011907

PATIENT
  Sex: Female

DRUGS (5)
  1. XARELTO [Suspect]
     Indication: CEREBROVASCULAR ACCIDENT PROPHYLAXIS
     Route: 048
     Dates: start: 20130812, end: 20131012
  2. XARELTO [Suspect]
     Indication: ATRIAL FIBRILLATION
     Route: 048
     Dates: start: 20130812, end: 20131012
  3. SOTACOR [Concomitant]
     Route: 065
  4. BLOPRESS PLUS [Concomitant]
     Route: 065
  5. ITERIUM [Concomitant]
     Route: 065

REACTIONS (5)
  - Cerebrovascular accident [Fatal]
  - Carotid artery occlusion [Fatal]
  - Brain oedema [Fatal]
  - Drug ineffective [Unknown]
  - General physical health deterioration [Unknown]
